FAERS Safety Report 5716257-0 (Version None)
Quarter: 2008Q2

REPORT INFORMATION
  Report Type: 
  Country: None (occurrence: None)
  Receive Date: 20080424
  Receipt Date: 20080416
  Transmission Date: 20081010
  Serious: Yes (Other)
  Sender: FDA-Public Use
  Company Number: A0724375A

PATIENT
  Age: 62 Year
  Sex: Female
  Weight: 58.2 kg

DRUGS (5)
  1. IMITREX [Suspect]
     Route: 048
  2. TOPAMAX [Suspect]
     Indication: MIGRAINE PROPHYLAXIS
     Dosage: 25MG TWICE PER DAY
     Route: 048
     Dates: start: 20000101
  3. BONIVA [Concomitant]
     Indication: OSTEOPOROSIS
     Dosage: 1U MONTHLY
     Route: 048
  4. VITAMIN WITH MINERALS [Concomitant]
     Indication: NUTRITIONAL SUPPORT
     Dosage: 1UNIT PER DAY
     Route: 048
  5. UNKNOWN [Concomitant]

REACTIONS (3)
  - LACRIMATION INCREASED [None]
  - NEPHROLITHIASIS [None]
  - VISION BLURRED [None]
